FAERS Safety Report 21980771 (Version 1)
Quarter: 2023Q1

REPORT INFORMATION
  Report Type: Spontaneous
  Country: US (occurrence: US)
  Receive Date: 20230211
  Receipt Date: 20230211
  Transmission Date: 20230418
  Serious: No
  Sender: FDA-Public Use
  Company Number: US-002147023-NVSC2023US026452

PATIENT
  Age: 70 Year
  Sex: Female

DRUGS (1)
  1. LEQVIO [Suspect]
     Active Substance: INCLISIRAN SODIUM
     Indication: Low density lipoprotein increased
     Dosage: 300 MG (2 INJECTIONS, INITIAL IN MAY 2022 SECOND INJECTION OCT 2022)
     Route: 058
     Dates: start: 202205, end: 202210

REACTIONS (1)
  - Low density lipoprotein increased [Not Recovered/Not Resolved]
